FAERS Safety Report 15404093 (Version 1)
Quarter: 2018Q3

REPORT INFORMATION
  Report Type: Spontaneous
  Country: US (occurrence: US)
  Receive Date: 20180919
  Receipt Date: 20180919
  Transmission Date: 20181010
  Serious: No
  Sender: FDA-Public Use
  Company Number: US-AVADEL SPECIALTY PHARMACEUTICALS, LLC-2018AVA00277

PATIENT
  Sex: Male

DRUGS (1)
  1. NOCTIVA [Suspect]
     Active Substance: DESMOPRESSIN ACETATE
     Dosage: 1.66 ?G, 1X/DAY IN EITHER THE LEFT OR RIGHT NOSTRIL APPROXIMATELY 30 MINUTES BEFORE BED
     Route: 045

REACTIONS (1)
  - Nasal discomfort [Not Recovered/Not Resolved]
